FAERS Safety Report 19603126 (Version 1)
Quarter: 2021Q3

REPORT INFORMATION
  Report Type: Spontaneous
  Country: US (occurrence: US)
  Receive Date: 20210723
  Receipt Date: 20210723
  Transmission Date: 20211014
  Serious: No
  Sender: FDA-Public Use
  Company Number: US-SA-2021SA240640

PATIENT
  Age: 37 Year
  Sex: Male

DRUGS (3)
  1. DUPIXENT [Suspect]
     Active Substance: DUPILUMAB
     Indication: DERMATITIS
     Dosage: 300 MG, QOW
     Route: 058
     Dates: start: 20210318, end: 2021
  2. PREDNISONE. [Concomitant]
     Active Substance: PREDNISONE
  3. ALPRAZOLAM. [Concomitant]
     Active Substance: ALPRAZOLAM

REACTIONS (5)
  - Dermatitis [Not Recovered/Not Resolved]
  - Infection [Not Recovered/Not Resolved]
  - Product use in unapproved indication [Unknown]
  - Heart rate irregular [Not Recovered/Not Resolved]
  - Chest discomfort [Not Recovered/Not Resolved]

NARRATIVE: CASE EVENT DATE: 2021
